FAERS Safety Report 13036112 (Version 9)
Quarter: 2019Q1

REPORT INFORMATION
  Report Type: Report from Study
  Country: AU (occurrence: AU)
  Receive Date: 20161216
  Receipt Date: 20190117
  Transmission Date: 20190417
  Serious: Yes (Hospitalization)
  Sender: FDA-Public Use
  Company Number: AU-BIOGEN-2016BI00329840

PATIENT
  Age: 74 Year
  Sex: Male

DRUGS (4)
  1. PLEGRIDY [Suspect]
     Active Substance: PEGINTERFERON BETA-1A
     Route: 058
     Dates: end: 20181112
  2. PLEGRIDY [Suspect]
     Active Substance: PEGINTERFERON BETA-1A
     Indication: MULTIPLE SCLEROSIS
     Route: 058
     Dates: start: 20161001
  3. PLEGRIDY [Suspect]
     Active Substance: PEGINTERFERON BETA-1A
     Route: 058
  4. PLEGRIDY [Suspect]
     Active Substance: PEGINTERFERON BETA-1A
     Route: 058
     Dates: end: 20170213

REACTIONS (15)
  - Dehydration [Unknown]
  - Confusional state [Unknown]
  - Anaemia [Recovered/Resolved]
  - Memory impairment [Unknown]
  - Blood test abnormal [Unknown]
  - Alcohol abuse [Recovered/Resolved]
  - Renal impairment [Recovered/Resolved]
  - Fatigue [Unknown]
  - Arthritis infective [Unknown]
  - Productive cough [Not Recovered/Not Resolved]
  - Irritability [Unknown]
  - Depression [Recovered/Resolved]
  - Diarrhoea [Unknown]
  - Malaise [Unknown]
  - Device malfunction [Unknown]

NARRATIVE: CASE EVENT DATE: 20161129
